FAERS Safety Report 4950181-6 (Version None)
Quarter: 2006Q1

REPORT INFORMATION
  Report Type: 
  Country: None (occurrence: None)
  Receive Date: 20060316
  Receipt Date: 20060309
  Transmission Date: 20060701
  Serious: Yes (Death, Life-Threatening, Hospitalization, Other)
  Sender: FDA-Public Use
  Company Number: A1481153

PATIENT
  Age: 35 Year
  Sex: Female
  Weight: 100 kg

DRUGS (17)
  1. SILDENAFIL CITRATE [Suspect]
     Indication: PULMONARY HYPERTENSION
     Dosage: 240 MG (80 MG, 3 IN 1 D), ORAL
     Route: 048
     Dates: start: 20051206
  2. FLOLAN [Suspect]
     Indication: ILL-DEFINED DISORDER
     Dosage: UNIT DOSE: 3.5 NG/MIN, INTRAVENOUS
     Route: 042
     Dates: start: 20050501
  3. OXYCONTIN [Concomitant]
  4. OXYCODONE HYDROCHLORIDE AND ACETAMINOPHEN [Concomitant]
  5. ALL OTHER THERAPEUTIC PRODUCTS [Concomitant]
  6. NOVOSPIROTON (SPIRONOLACTONE) [Concomitant]
  7. NOVOSEMIDE (FUROSEMIDE) [Concomitant]
  8. AMITRIPTYLINE HYDROCHLORIDE [Concomitant]
  9. CITALOPRAM [Concomitant]
  10. SIMVASTATIN [Concomitant]
  11. PSYLLIUM [Concomitant]
  12. DIPHENHYDRAMINE [Concomitant]
  13. NOVO-LOPERAMIDE (LOPERAMIDE HYDROCHLORIDE) [Concomitant]
  14. NOVODIMENATE (DIMENHYDRINATE) [Concomitant]
  15. FLUORIDE [Concomitant]
  16. IMOVANE (ZOPICLONE) [Concomitant]
  17. CIPROFLOXACIN [Concomitant]

REACTIONS (12)
  - CEREBRAL HAEMORRHAGE [None]
  - CYSTITIS [None]
  - DYSPEPSIA [None]
  - HYPOXIA [None]
  - INTERNATIONAL NORMALISED RATIO INCREASED [None]
  - MYALGIA [None]
  - PHARYNGOLARYNGEAL PAIN [None]
  - PLASMAPHERESIS [None]
  - PYREXIA [None]
  - RENAL FAILURE [None]
  - SEPSIS [None]
  - THROMBOTIC THROMBOCYTOPENIC PURPURA [None]
